FAERS Safety Report 24079551 (Version 1)
Quarter: 2024Q3

REPORT INFORMATION
  Report Type: Spontaneous
  Country: AT (occurrence: AT)
  Receive Date: 20240711
  Receipt Date: 20240711
  Transmission Date: 20241016
  Serious: Yes (Other)
  Sender: PFIZER
  Company Number: AT-TAKEDA-2018MPI002258

PATIENT
  Sex: Female

DRUGS (5)
  1. ADCETRIS [Suspect]
     Active Substance: BRENTUXIMAB VEDOTIN
     Indication: Peripheral T-cell lymphoma unspecified
     Dosage: UNK, CYCLIC
     Dates: start: 201801
  2. ADCETRIS [Suspect]
     Active Substance: BRENTUXIMAB VEDOTIN
     Dosage: UNK
     Dates: end: 201906
  3. CARBOPLATIN [Suspect]
     Active Substance: CARBOPLATIN
     Indication: Peripheral T-cell lymphoma unspecified
     Dosage: UNK
     Dates: start: 201907
  4. IFOSFAMIDE [Suspect]
     Active Substance: IFOSFAMIDE
     Indication: Peripheral T-cell lymphoma unspecified
     Dosage: UNK
     Dates: start: 201907
  5. ETOPOSIDE [Suspect]
     Active Substance: ETOPOSIDE
     Indication: Peripheral T-cell lymphoma unspecified
     Dosage: UNK
     Dates: start: 201907

REACTIONS (3)
  - Myelosuppression [Unknown]
  - Peripheral sensory neuropathy [Unknown]
  - Off label use [Unknown]

NARRATIVE: CASE EVENT DATE: 20180101
